FAERS Safety Report 5032788-3 (Version None)
Quarter: 2006Q2

REPORT INFORMATION
  Report Type: 
  Country: None (occurrence: None)
  Receive Date: 20060620
  Receipt Date: 20060620
  Transmission Date: 20061013
  Serious: Yes (Life-Threatening, Hospitalization)
  Sender: FDA-Public Use
  Company Number: None

PATIENT
  Age: 65 Year
  Sex: Female
  Weight: 93.5 kg

DRUGS (10)
  1. FENTANYL [Suspect]
     Indication: SEDATIVE THERAPY
     Dosage: 25 MCG ONCE IV
     Route: 042
     Dates: start: 20050812, end: 20050812
  2. MIDAZOLAM HCL [Suspect]
     Indication: SEDATIVE THERAPY
     Dosage: 1 MG ONCE IV
     Route: 042
     Dates: start: 20050812, end: 20050812
  3. PROTONIX [Concomitant]
  4. CALCIUM CARBONATE [Concomitant]
  5. ZOCOR [Concomitant]
  6. LEVAQUIN [Concomitant]
  7. CLINDAMYCIN [Concomitant]
  8. TYLENOL (CAPLET) [Concomitant]
  9. PHENERGAN HCL [Concomitant]
  10. BIPAP [Concomitant]

REACTIONS (9)
  - BLOOD PH DECREASED [None]
  - BLOOD PRESSURE DECREASED [None]
  - BLOOD PRESSURE INCREASED [None]
  - CARDIO-RESPIRATORY ARREST [None]
  - HEART RATE DECREASED [None]
  - PCO2 INCREASED [None]
  - PROCEDURAL COMPLICATION [None]
  - RESPIRATORY ACIDOSIS [None]
  - RESPIRATORY FAILURE [None]
